FAERS Safety Report 8171735-2 (Version None)
Quarter: 2012Q1

REPORT INFORMATION
  Report Type: 
  Country: None (occurrence: None)
  Receive Date: 20120228
  Receipt Date: 20120222
  Transmission Date: 20120608
  Serious: Yes (Death)
  Sender: FDA-Public Use
  Company Number: CHPA2012US003568

PATIENT
  Sex: Female

DRUGS (1)
  1. KERI UNKNOWN [Suspect]
     Indication: SKIN DISORDER
     Dosage: UNK, UNK
     Route: 061

REACTIONS (1)
  - NEOPLASM MALIGNANT [None]
